FAERS Safety Report 7606384-5 (Version None)
Quarter: 2011Q3

REPORT INFORMATION
  Report Type: 
  Country: None (occurrence: None)
  Receive Date: 20110713
  Receipt Date: 20110707
  Transmission Date: 20111222
  Serious: Yes (Other)
  Sender: FDA-Public Use
  Company Number: US-SANOFI-AVENTIS-2011SA043493

PATIENT
  Age: 76 Year
  Sex: Female

DRUGS (7)
  1. LISINOPRIL [Concomitant]
     Route: 065
  2. POTASSIUM [Concomitant]
  3. METOPROLOL SUCCINATE [Suspect]
     Route: 065
  4. MULTAQ [Suspect]
     Indication: ATRIAL FIBRILLATION
     Route: 048
     Dates: start: 20110701
  5. METOPROLOL SUCCINATE [Suspect]
     Route: 065
  6. AMIODARONE HYDROCHLORIDE [Concomitant]
     Route: 065
     Dates: start: 20110601, end: 20110601
  7. SOTALOL HCL [Concomitant]
     Dates: end: 20110601

REACTIONS (8)
  - ARRHYTHMIA [None]
  - WEIGHT INCREASED [None]
  - FEELING ABNORMAL [None]
  - ABDOMINAL DISTENSION [None]
  - SYNCOPE [None]
  - DRUG DOSE OMISSION [None]
  - DYSPNOEA [None]
  - OEDEMA PERIPHERAL [None]
